FAERS Safety Report 18258879 (Version 1)
Quarter: 2020Q3

REPORT INFORMATION
  Report Type: Report from Study
  Country: US (occurrence: US)
  Receive Date: 20200911
  Receipt Date: 20200911
  Transmission Date: 20201103
  Serious: Yes (Other)
  Sender: FDA-Public Use
  Company Number: US-TEVA-2020-US-1825805

PATIENT
  Sex: Female

DRUGS (1)
  1. COPAXONE [Suspect]
     Active Substance: GLATIRAMER ACETATE
     Dates: start: 20191201

REACTIONS (6)
  - Swelling face [Unknown]
  - Lip swelling [Unknown]
  - Injection site rash [Unknown]
  - Injection site swelling [Unknown]
  - Swollen tongue [Unknown]
  - Injection site pruritus [Unknown]
